FAERS Safety Report 21916193 (Version 1)
Quarter: 2023Q1

REPORT INFORMATION
  Report Type: Spontaneous
  Country: US (occurrence: None)
  Receive Date: 20230125
  Receipt Date: 20230125
  Transmission Date: 20230418
  Serious: No
  Sender: FDA-Public Use
  Company Number: None

PATIENT
  Age: 75 Year
  Sex: Female

DRUGS (1)
  1. NUCALA [Suspect]
     Active Substance: MEPOLIZUMAB
     Dosage: 300MG OTHER SUBCUTANEOUS
     Route: 058
     Dates: start: 20221118, end: 20230112

REACTIONS (6)
  - Trigeminal neuralgia [None]
  - Herpes zoster oticus [None]
  - Nausea [None]
  - Vomiting [None]
  - Dizziness [None]
  - Therapy cessation [None]

NARRATIVE: CASE EVENT DATE: 20221223
